FAERS Safety Report 21117591 (Version 1)
Quarter: 2022Q3

REPORT INFORMATION
  Report Type: Spontaneous
  Country: AU (occurrence: AU)
  Receive Date: 20220722
  Receipt Date: 20220722
  Transmission Date: 20221026
  Serious: Yes (Other)
  Sender: FDA-Public Use
  Company Number: AU-BAXTER-2022BAX015075

PATIENT
  Age: 59 Year
  Sex: Male

DRUGS (9)
  1. DOXORUBICIN [Suspect]
     Active Substance: DOXORUBICIN
     Indication: Diffuse large B-cell lymphoma stage IV
     Dosage: 6 CYCLES OF RCHOP CHEMOTHERAPY
     Route: 065
     Dates: start: 202002
  2. CYCLOPHOSPHAMIDE [Suspect]
     Active Substance: CYCLOPHOSPHAMIDE
     Indication: Diffuse large B-cell lymphoma stage IV
     Dosage: UNK, 6 CYCLES OF RCHOP CHEMOTHERAPY
     Route: 065
     Dates: start: 202002
  3. IFOSFAMIDE [Suspect]
     Active Substance: IFOSFAMIDE
     Indication: Diffuse large B-cell lymphoma stage IV
     Dosage: UNK, 3 CYCLES OF RICE CHEMOTHERAPY.
     Route: 065
  4. RITUXIMAB [Suspect]
     Active Substance: RITUXIMAB
     Indication: Diffuse large B-cell lymphoma stage IV
     Dosage: 6 CYCLES OF RCHOP CHEMOTHERAPY
     Route: 065
     Dates: start: 202002
  5. RITUXIMAB [Suspect]
     Active Substance: RITUXIMAB
     Dosage: UNK, 3 CYCLES OF RICE CHEMOTHERAPY
     Route: 065
  6. VINCRISTINE [Suspect]
     Active Substance: VINCRISTINE
     Indication: Diffuse large B-cell lymphoma stage IV
     Dosage: UNK, 6 CYCLES OF CHEMOTHERAPY
     Route: 065
     Dates: start: 202002
  7. PREDNISONE [Suspect]
     Active Substance: PREDNISONE
     Indication: Diffuse large B-cell lymphoma stage IV
     Dosage: UNK, 6 CYCLES OF CHEMOTHERAPY
     Route: 065
     Dates: start: 202002
  8. CARBOPLATIN [Suspect]
     Active Substance: CARBOPLATIN
     Indication: Diffuse large B-cell lymphoma stage IV
     Dosage: 3 CYCLES OF RICE CHEMOTHERAPY
     Route: 065
  9. ETOPOSIDE [Suspect]
     Active Substance: ETOPOSIDE
     Indication: Diffuse large B-cell lymphoma stage IV
     Dosage: 3 CYCLES OF RICE CHEMOTHERAPY
     Route: 065

REACTIONS (3)
  - Diffuse large B-cell lymphoma refractory [Recovered/Resolved]
  - Diffuse large B-cell lymphoma refractory [Recovered/Resolved]
  - Diffuse large B-cell lymphoma refractory [Unknown]

NARRATIVE: CASE EVENT DATE: 20210801
